FAERS Safety Report 16234897 (Version 1)
Quarter: 2019Q2

REPORT INFORMATION
  Report Type: Spontaneous
  Country: US (occurrence: US)
  Receive Date: 20190424
  Receipt Date: 20190424
  Transmission Date: 20190711
  Serious: Yes (Hospitalization)
  Sender: FDA-Public Use
  Company Number: US-PFIZER INC-2019167232

PATIENT
  Age: 82 Year
  Sex: Female
  Weight: 64.41 kg

DRUGS (1)
  1. TIKOSYN [Suspect]
     Active Substance: DOFETILIDE
     Indication: CARDIAC DISORDER
     Dosage: 250 MG, 2X/DAY (ONCE IN THE AM AND ONCE IN THE PM)
     Route: 048

REACTIONS (1)
  - Fall [Unknown]
